FAERS Safety Report 14093315 (Version 1)
Quarter: 2017Q4

REPORT INFORMATION
  Report Type: Spontaneous
  Country: US (occurrence: US)
  Receive Date: 20171016
  Receipt Date: 20171016
  Transmission Date: 20180321
  Serious: Yes (Life-Threatening)
  Sender: FDA-Public Use
  Company Number: None

PATIENT
  Age: 54 Year
  Sex: Female
  Weight: 62.1 kg

DRUGS (3)
  1. CLONAZEPAM. [Suspect]
     Active Substance: CLONAZEPAM
     Indication: ANXIETY
     Dosage: ?          QUANTITY:1 1;?
     Route: 048
     Dates: start: 20171005, end: 20171016
  2. TOPRIMATE [Concomitant]
     Active Substance: TOPIRAMATE
  3. RIZATRIPTAN MLT [Concomitant]

REACTIONS (4)
  - Myocardial infarction [None]
  - Chest pain [None]
  - Headache [None]
  - Cerebrovascular accident [None]

NARRATIVE: CASE EVENT DATE: 20171005
